FAERS Safety Report 6453694-3 (Version None)
Quarter: 2009Q4

REPORT INFORMATION
  Report Type: 
  Country: None (occurrence: None)
  Receive Date: 20091123
  Receipt Date: 20091123
  Transmission Date: 20100525
  Serious: No
  Sender: FDA-Public Use
  Company Number: None

PATIENT
  Age: 54 Year
  Sex: Female
  Weight: 54.4316 kg

DRUGS (3)
  1. LEVAQUIN [Suspect]
     Indication: COLITIS ULCERATIVE
     Dosage: 2 HRS APART IV
     Route: 042
     Dates: start: 20091117, end: 20091118
  2. LEVAQUIN [Suspect]
     Indication: ENTEROCOLITIS INFECTIOUS
     Dosage: 2 HRS APART IV
     Route: 042
     Dates: start: 20091117, end: 20091118
  3. LEVAQUIN [Concomitant]

REACTIONS (4)
  - COLITIS ULCERATIVE [None]
  - ENTEROCOLITIS INFECTIOUS [None]
  - HAEMATEMESIS [None]
  - PAIN IN EXTREMITY [None]
